FAERS Safety Report 7988085-7 (Version None)
Quarter: 2011Q4

REPORT INFORMATION
  Report Type: 
  Country: None (occurrence: None)
  Receive Date: 20111216
  Receipt Date: 20110602
  Transmission Date: 20120403
  Serious: No
  Sender: FDA-Public Use
  Company Number: US-BRISTOL-MYERS SQUIBB COMPANY-15801145

PATIENT
  Age: 53 Year
  Sex: Female

DRUGS (7)
  1. LEXAPRO [Concomitant]
  2. ADVAIR DISKUS 100/50 [Concomitant]
  3. BUSPAR [Concomitant]
  4. LEVOXYL [Concomitant]
  5. ABILIFY [Suspect]
     Indication: ANXIETY
     Dosage: STARTED AS 2 MG THEN INCREASED TO 7.5MG
     Dates: start: 20110101, end: 20110101
  6. AMBIEN [Concomitant]
  7. ABILIFY [Suspect]
     Indication: DEPRESSION
     Dosage: STARTED AS 2 MG THEN INCREASED TO 7.5MG
     Dates: start: 20110101, end: 20110101

REACTIONS (2)
  - MUSCULOSKELETAL STIFFNESS [None]
  - BLUNTED AFFECT [None]
